FAERS Safety Report 8120023-9 (Version None)
Quarter: 2012Q1

REPORT INFORMATION
  Report Type: 
  Country: None (occurrence: None)
  Receive Date: 20120203
  Receipt Date: 20120131
  Transmission Date: 20120608
  Serious: Yes (Other)
  Sender: FDA-Public Use
  Company Number: ADR-2011-11333

PATIENT
  Age: 45 Year
  Sex: Female

DRUGS (4)
  1. FENTANYL-100 [Concomitant]
  2. LIORESAL [Suspect]
     Indication: PAIN
     Dosage: 90 MCG, DAILY, INTRATHECAL
     Route: 037
  3. LIORESAL [Suspect]
     Indication: SPINAL LAMINECTOMY
     Dosage: 90 MCG, DAILY, INTRATHECAL
     Route: 037
  4. DILAUDID [Concomitant]

REACTIONS (4)
  - INCISION SITE INFECTION [None]
  - WOUND DEHISCENCE [None]
  - IMPAIRED HEALING [None]
  - CELLULITIS [None]
